FAERS Safety Report 20232070 (Version 1)
Quarter: 2021Q4

REPORT INFORMATION
  Report Type: Spontaneous
  Country: RU (occurrence: RU)
  Receive Date: 20211227
  Receipt Date: 20211227
  Transmission Date: 20220303
  Serious: Yes (Other)
  Sender: FDA-Public Use
  Company Number: RU-BAYER-2021A269356

PATIENT
  Age: 63 Year
  Sex: Female
  Weight: 61 kg

DRUGS (1)
  1. STIVARGA [Suspect]
     Active Substance: REGORAFENIB
     Indication: Colorectal cancer metastatic
     Dosage: 80, 120, 160 MG, UNK
     Route: 048
     Dates: start: 202104, end: 202111

REACTIONS (5)
  - Colorectal cancer metastatic [None]
  - Anaemia [None]
  - Blood pressure increased [None]
  - Asthenia [None]
  - Off label use [None]

NARRATIVE: CASE EVENT DATE: 20210101
